FAERS Safety Report 5840003-3 (Version None)
Quarter: 2008Q3

REPORT INFORMATION
  Report Type: 
  Country: None (occurrence: None)
  Receive Date: 20080811
  Receipt Date: 20080730
  Transmission Date: 20090109
  Serious: Yes (Hospitalization)
  Sender: FDA-Public Use
  Company Number: US-NOVOPROD-278056

PATIENT

DRUGS (3)
  1. NOVOLOG MIX 70/30 [Suspect]
     Indication: DIABETES MELLITUS
     Dosage: UNKNOWN
     Route: 058
  2. LANTUS [Suspect]
     Indication: DIABETES MELLITUS
     Route: 058
  3. NOVOLOG [Suspect]
     Indication: DIABETES MELLITUS

REACTIONS (3)
  - HOSPITALISATION [None]
  - HYPERGLYCAEMIA [None]
  - MEDICATION ERROR [None]
